FAERS Safety Report 7925119-X (Version None)
Quarter: 2011Q4

REPORT INFORMATION
  Report Type: 
  Country: None (occurrence: None)
  Receive Date: 20111118
  Receipt Date: 20110401
  Transmission Date: 20120403
  Serious: No
  Sender: FDA-Public Use
  Company Number: US-AMGEN-USASP2011017673

PATIENT
  Age: 57 Year
  Sex: Female
  Weight: 69.841 kg

DRUGS (1)
  1. ENBREL [Suspect]
     Indication: RHEUMATOID ARTHRITIS
     Dosage: 50 MG, QWK
     Route: 058
     Dates: start: 20110305

REACTIONS (5)
  - SOMNOLENCE [None]
  - MOBILITY DECREASED [None]
  - FATIGUE [None]
  - HEADACHE [None]
  - PAIN [None]
